FAERS Safety Report 9462392 (Version 1)
Quarter: 2013Q3

REPORT INFORMATION
  Report Type: Spontaneous
  Country: US (occurrence: None)
  Receive Date: 20130815
  Receipt Date: 20130815
  Transmission Date: 20140515
  Serious: Yes (Hospitalization)
  Sender: FDA-Public Use
  Company Number: None

PATIENT
  Age: 29 Year
  Sex: Female

DRUGS (1)
  1. MEPERIDINE [Suspect]
     Indication: CHILLS
     Route: 042
     Dates: start: 20130711, end: 20130711

REACTIONS (6)
  - Serotonin syndrome [None]
  - Postoperative fever [None]
  - Procedural pain [None]
  - Clonus [None]
  - Liver function test abnormal [None]
  - Migraine [None]
